FAERS Safety Report 24415221 (Version 1)
Quarter: 2024Q4

REPORT INFORMATION
  Report Type: Spontaneous
  Country: AU (occurrence: AU)
  Receive Date: 20241009
  Receipt Date: 20241009
  Transmission Date: 20250114
  Serious: Yes (Death, Hospitalization)
  Sender: AMGEN
  Company Number: AU-AMGEN-AUSSP2024198211

PATIENT

DRUGS (1)
  1. BLINATUMOMAB [Suspect]
     Active Substance: BLINATUMOMAB
     Indication: B-cell type acute leukaemia
     Dosage: UNK
     Route: 065

REACTIONS (40)
  - Acute lymphocytic leukaemia recurrent [Fatal]
  - Lung disorder [Fatal]
  - Death [Fatal]
  - Interstitial lung disease [Unknown]
  - Post transplant lymphoproliferative disorder [Unknown]
  - Pulmonary veno-occlusive disease [Unknown]
  - Organising pneumonia [Unknown]
  - Pulmonary alveolar haemorrhage [Unknown]
  - Acute respiratory distress syndrome [Unknown]
  - Graft versus host disease in lung [Unknown]
  - Restrictive pulmonary disease [Unknown]
  - Thrombotic microangiopathy [Unknown]
  - Idiopathic pneumonia syndrome [Unknown]
  - Engraftment syndrome [Unknown]
  - Obliterative bronchiolitis [Unknown]
  - Pulmonary haemorrhage [Unknown]
  - Pulmonary fibrosis [Unknown]
  - Acute graft versus host disease [Unknown]
  - Chronic graft versus host disease [Unknown]
  - Venoocclusive disease [Unknown]
  - Pulmonary air leakage [Unknown]
  - Pulmonary hypertension [Unknown]
  - Pulmonary function test decreased [Unknown]
  - Tracheobronchitis [Unknown]
  - Pulmonary oedema [Unknown]
  - Clostridium difficile infection [Unknown]
  - Cytomegalovirus infection [Unknown]
  - Rhinovirus infection [Unknown]
  - Adenovirus infection [Unknown]
  - Parainfluenzae virus infection [Unknown]
  - Pneumonia bacterial [Unknown]
  - Pneumonia viral [Unknown]
  - Pneumocystis jirovecii pneumonia [Unknown]
  - Aspergillus infection [Unknown]
  - Candida infection [Unknown]
  - Sepsis [Unknown]
  - Febrile neutropenia [Unknown]
  - Pneumonia [Unknown]
  - Pneumonia fungal [Unknown]
  - Pseudomonas infection [Unknown]
